FAERS Safety Report 7584545-1 (Version None)
Quarter: 2011Q2

REPORT INFORMATION
  Report Type: 
  Country: None (occurrence: None)
  Receive Date: 20110630
  Receipt Date: 20110623
  Transmission Date: 20111010
  Serious: Yes (Other)
  Sender: FDA-Public Use
  Company Number: HU-PFIZER INC-2011141096

PATIENT
  Age: 82 Year
  Sex: Male
  Weight: 92 kg

DRUGS (3)
  1. THYROXIN [Concomitant]
     Dosage: UNK
     Dates: start: 20000101
  2. LYRICA [Suspect]
     Indication: NEURALGIA
     Dosage: 150 MG, 2X/DAY
     Dates: start: 20110101, end: 20110304
  3. METFORMIN [Concomitant]
     Dosage: UNK

REACTIONS (1)
  - BLOOD PRESSURE INCREASED [None]
